FAERS Safety Report 12909127 (Version 1)
Quarter: 2016Q4

REPORT INFORMATION
  Report Type: Spontaneous
  Country: US (occurrence: US)
  Receive Date: 20161103
  Receipt Date: 20161103
  Transmission Date: 20170207
  Serious: No
  Sender: FDA-Public Use
  Company Number: US-JAZZ-2016-US-017066

PATIENT
  Sex: Male

DRUGS (14)
  1. XYREM [Suspect]
     Active Substance: SODIUM OXYBATE
     Indication: NARCOLEPSY
     Dosage: 2.25 G, BID
     Route: 048
     Dates: start: 201604, end: 201604
  2. OXCARBAZEPINE. [Concomitant]
     Active Substance: OXCARBAZEPINE
  3. ASPIRIN. [Concomitant]
     Active Substance: ASPIRIN
  4. PRISTIQ EXTENDED-RELEASE [Concomitant]
     Active Substance: DESVENLAFAXINE SUCCINATE
  5. ALEVE [Concomitant]
     Active Substance: NAPROXEN SODIUM
  6. CIPROFLOXACIN. [Concomitant]
     Active Substance: CIPROFLOXACIN
  7. ADVAIR HFA [Concomitant]
     Active Substance: FLUTICASONE PROPIONATE\SALMETEROL XINAFOATE
  8. NUVIGIL [Concomitant]
     Active Substance: ARMODAFINIL
  9. IBUPROFEN. [Concomitant]
     Active Substance: IBUPROFEN
  10. XYREM [Suspect]
     Active Substance: SODIUM OXYBATE
     Dosage: 4.5 G, BID
     Route: 048
     Dates: start: 201605
  11. LAMICTAL [Concomitant]
     Active Substance: LAMOTRIGINE
  12. XYREM [Suspect]
     Active Substance: SODIUM OXYBATE
     Dosage: DOSE ADJUSTMENT
     Dates: start: 201604, end: 201605
  13. XANAX [Concomitant]
     Active Substance: ALPRAZOLAM
  14. ADDERALL [Concomitant]
     Active Substance: AMPHETAMINE ASPARTATE\AMPHETAMINE SULFATE\DEXTROAMPHETAMINE SACCHARATE\DEXTROAMPHETAMINE SULFATE

REACTIONS (3)
  - Asthma [Unknown]
  - Hypersensitivity [Unknown]
  - Hypertension [Recovering/Resolving]

NARRATIVE: CASE EVENT DATE: 2016
